APPROVED DRUG PRODUCT: C-SOLVE-2
Active Ingredient: ERYTHROMYCIN
Strength: 2%
Dosage Form/Route: SWAB;TOPICAL
Application: A062751 | Product #001
Applicant: IVAX PHARMACEUTICALS INC SUB TEVA PHARMACEUTICALS USA
Approved: Jul 30, 1993 | RLD: No | RS: No | Type: DISCN